FAERS Safety Report 10218621 (Version 2)
Quarter: 2014Q2

REPORT INFORMATION
  Report Type: Spontaneous
  Country: US (occurrence: US)
  Receive Date: 20140605
  Receipt Date: 20140605
  Transmission Date: 20141212
  Serious: No
  Sender: FDA-Public Use
  Company Number: US-PFIZER INC-2014148341

PATIENT
  Age: 64 Year
  Sex: Male
  Weight: 88.44 kg

DRUGS (6)
  1. LYRICA [Suspect]
     Indication: FIBROMYALGIA
     Dosage: 300 MG, 2X/DAY
     Route: 048
     Dates: start: 2009
  2. TRAZODONE [Concomitant]
     Dosage: 150 MG, 1X/DAY (AT BEDTIME)
  3. CYCLOBENZAPRINE [Concomitant]
     Indication: MUSCLE SPASMS
     Dosage: 10 MG, UNK
  4. CLOPIDOGREL [Concomitant]
     Dosage: 75 MG, UNK
  5. POTASSIUM [Concomitant]
     Dosage: 10 MEQ, UNK
  6. LISINOPRIL [Concomitant]
     Indication: HYPERTENSION
     Dosage: 20 MG, 1X/DAY

REACTIONS (1)
  - Fibromyalgia [Unknown]
